FAERS Safety Report 4987082-3 (Version None)
Quarter: 2006Q2

REPORT INFORMATION
  Report Type: 
  Country: None (occurrence: None)
  Receive Date: 20060501
  Receipt Date: 20060329
  Transmission Date: 20061013
  Serious: Yes (Other)
  Sender: FDA-Public Use
  Company Number: BE-GLAXOSMITHKLINE-B0419527A

PATIENT
  Age: 36 Year
  Sex: Male
  Weight: 80 kg

DRUGS (4)
  1. KIVEXA [Suspect]
     Indication: HIV INFECTION
     Dosage: 1TAB PER DAY
     Route: 048
     Dates: start: 20060208, end: 20060221
  2. TELZIR [Concomitant]
     Indication: HIV INFECTION
     Route: 048
     Dates: start: 20060208, end: 20060221
  3. NORVIR [Concomitant]
     Indication: HIV INFECTION
     Route: 048
     Dates: start: 20060208, end: 20060221
  4. SULFAMETHOXAZOLE + TRIMETHOPRIME [Concomitant]
     Route: 048
     Dates: start: 20060101

REACTIONS (5)
  - EOSINOPHILIA [None]
  - HYPERSENSITIVITY [None]
  - PRURITUS [None]
  - PYREXIA [None]
  - RASH GENERALISED [None]
